FAERS Safety Report 8306819-9 (Version None)
Quarter: 2012Q2

REPORT INFORMATION
  Report Type: 
  Country: None (occurrence: None)
  Receive Date: 20120424
  Receipt Date: 20120418
  Transmission Date: 20120825
  Serious: No
  Sender: FDA-Public Use
  Company Number: US-PFIZER INC-2012096600

PATIENT
  Sex: Male
  Weight: 120.2 kg

DRUGS (6)
  1. ASPIRIN [Concomitant]
     Dosage: UNK
  2. WARFARIN [Concomitant]
     Dosage: UNK
  3. TOPROL-XL [Concomitant]
     Dosage: 50 MG, 2X/DAY
  4. MONOPRIL [Concomitant]
     Dosage: 20 MG, 1X/DAY
  5. TIKOSYN [Suspect]
     Indication: ARRHYTHMIA
  6. TIKOSYN [Suspect]
     Indication: ATRIAL FIBRILLATION
     Dosage: 0.5 MG, 2X/DAY
     Route: 048
     Dates: start: 20110901

REACTIONS (1)
  - HEADACHE [None]
